FAERS Safety Report 5094692-4 (Version None)
Quarter: 2006Q3

REPORT INFORMATION
  Report Type: 
  Country: None (occurrence: None)
  Receive Date: 20060731
  Receipt Date: 20060418
  Transmission Date: 20061208
  Serious: No
  Sender: FDA-Public Use
  Company Number: 2006PV012281

PATIENT
  Sex: Female

DRUGS (2)
  1. BYETTA [Suspect]
     Indication: INSULIN RESISTANT DIABETES
     Dosage: 5 MCG;BID;SC
     Route: 058
     Dates: start: 20050601
  2. ACTOS [Concomitant]

REACTIONS (4)
  - ANOREXIA [None]
  - HYPERGLYCAEMIA [None]
  - INJECTION SITE URTICARIA [None]
  - WEIGHT DECREASED [None]
